FAERS Safety Report 23554284 (Version 3)
Quarter: 2024Q2

REPORT INFORMATION
  Report Type: Spontaneous
  Country: US (occurrence: None)
  Receive Date: 20240222
  Receipt Date: 20240419
  Transmission Date: 20240716
  Serious: Yes (Other)
  Sender: FDA-Public Use
  Company Number: 2024A038678

PATIENT
  Sex: Male

DRUGS (1)
  1. BUDESONIDE\FORMOTEROL [Suspect]
     Active Substance: BUDESONIDE\FORMOTEROL
     Indication: Pneumonia
     Dosage: 80/4.5 120 INHALATIONS UNKNOWN
     Route: 055

REACTIONS (7)
  - Pleural effusion [Unknown]
  - Wrong technique in product usage process [Unknown]
  - Device use issue [Unknown]
  - Device malfunction [Unknown]
  - Product prescribing issue [Unknown]
  - Drug delivery system issue [Unknown]
  - Device delivery system issue [Unknown]
